FAERS Safety Report 10080895 (Version 5)
Quarter: 2014Q4

REPORT INFORMATION
  Report Type: Spontaneous
  Country: GB (occurrence: GB)
  Receive Date: 20140416
  Receipt Date: 20141015
  Transmission Date: 20150528
  Serious: Yes (Other)
  Sender: FDA-Public Use
  Company Number: PHFR2014GB002815

PATIENT
  Age: 20 Year
  Sex: Male

DRUGS (29)
  1. TEGRETOL [Suspect]
     Active Substance: CARBAMAZEPINE
     Dosage: 100 MG, UNK
  2. CARBAMAZEPINE. [Suspect]
     Active Substance: CARBAMAZEPINE
     Indication: SEIZURE
     Dosage: 200 MG, BID
  3. TEGRETOL [Suspect]
     Active Substance: CARBAMAZEPINE
     Dosage: 200 MG, UNK
  4. CARBAMAZEPINE. [Suspect]
     Active Substance: CARBAMAZEPINE
     Dosage: 200 MG, BID
  5. VALPROIC ACID. [Suspect]
     Active Substance: VALPROIC ACID
     Dosage: UNK UKN, UNK
  6. MIDAZOLAM [Suspect]
     Active Substance: MIDAZOLAM\MIDAZOLAM HYDROCHLORIDE
     Dosage: UNK UKN, UNK
     Route: 002
  7. CARBAMAZEPINE. [Suspect]
     Active Substance: CARBAMAZEPINE
     Dosage: 300 MG, BID
  8. TOPIRAMATE. [Suspect]
     Active Substance: TOPIRAMATE
     Dosage: 25 MG, QOD
  9. TEGRETOL [Suspect]
     Active Substance: CARBAMAZEPINE
     Dosage: 400 MG, DAILY
     Route: 048
  10. TEGRETOL [Suspect]
     Active Substance: CARBAMAZEPINE
     Dosage: 100 MG, UNK
  11. TEGRETOL [Suspect]
     Active Substance: CARBAMAZEPINE
     Dosage: 600 MG, UNK
  12. VALPROIC ACID. [Suspect]
     Active Substance: VALPROIC ACID
     Dosage: 400 MG/24 HOURS
  13. LAMICTAL [Suspect]
     Active Substance: LAMOTRIGINE
     Dosage: 100 MG, UNK
  14. LAMICTAL [Suspect]
     Active Substance: LAMOTRIGINE
     Dosage: 150 MG, BID
  15. ADCAL D3 [Concomitant]
     Active Substance: CALCIUM CARBONATE\CHOLECALCIFEROL
     Dosage: UNK UKN, UNK
  16. TEGRETOL [Suspect]
     Active Substance: CARBAMAZEPINE
     Indication: EPILEPSY
     Dosage: 500 MG, DAILY (CONCENTRATION 200 MG)
     Dates: start: 1989
  17. TEGRETOL [Suspect]
     Active Substance: CARBAMAZEPINE
     Dosage: 1000 MG, UNK
     Dates: end: 20120511
  18. TEGRETOL [Suspect]
     Active Substance: CARBAMAZEPINE
     Dosage: 400 MG, UNK
  19. CARBAMAZEPINE. [Suspect]
     Active Substance: CARBAMAZEPINE
     Dosage: 100 MG, BID
  20. LAMICTAL [Suspect]
     Active Substance: LAMOTRIGINE
     Indication: EPILEPSY
     Dosage: 400 MG, DAY
  21. LAMICTAL [Suspect]
     Active Substance: LAMOTRIGINE
     Dosage: 500 MG, DAILY
  22. LAMICTAL [Suspect]
     Active Substance: LAMOTRIGINE
     Dosage: 275 MG, UNK
  23. TEGRETOL [Suspect]
     Active Substance: CARBAMAZEPINE
     Dosage: 200 MG, UNK
  24. LAMICTAL [Suspect]
     Active Substance: LAMOTRIGINE
     Dosage: 300 MG/24 HOURS
  25. LAMICTAL [Suspect]
     Active Substance: LAMOTRIGINE
     Dosage: 200 MG, UNK
  26. LAMICTAL [Suspect]
     Active Substance: LAMOTRIGINE
     Dosage: 300 MG, DAY
  27. LAMICTAL [Suspect]
     Active Substance: LAMOTRIGINE
     Dosage: 250 MG, BID
  28. VITAMIN D [Concomitant]
     Active Substance: CHOLECALCIFEROL
     Indication: BONE DISORDER
     Dosage: UNK UKN, UNK
  29. LAMICTAL [Suspect]
     Active Substance: LAMOTRIGINE
     Dosage: 225 MG/24 HOURS

REACTIONS (45)
  - Epilepsy [Recovered/Resolved]
  - Petit mal epilepsy [Recovered/Resolved]
  - Microcephaly [Unknown]
  - Emotional disorder [Recovering/Resolving]
  - Depressed level of consciousness [Recovered/Resolved]
  - Toxicity to various agents [Recovered/Resolved]
  - Drug level increased [Recovered/Resolved]
  - Emotional distress [Recovering/Resolving]
  - Aggression [Recovered/Resolved]
  - Hypersomnia [Unknown]
  - Fear [Recovering/Resolving]
  - Gait disturbance [Recovering/Resolving]
  - Bone density decreased [Recovered/Resolved with Sequelae]
  - Suspiciousness [Recovering/Resolving]
  - Diarrhoea [Recovered/Resolved]
  - Seizure [Recovered/Resolved]
  - Distractibility [Recovering/Resolving]
  - Stress [Recovering/Resolving]
  - Euphoric mood [Recovering/Resolving]
  - Insomnia [Recovering/Resolving]
  - Musculoskeletal stiffness [Recovering/Resolving]
  - Irritability [Recovering/Resolving]
  - Hyperexplexia [Recovered/Resolved]
  - Frustration [Recovered/Resolved]
  - Abnormal behaviour [Recovering/Resolving]
  - Depressed mood [Recovering/Resolving]
  - Staring [Recovering/Resolving]
  - Agitation [Recovering/Resolving]
  - Generalised tonic-clonic seizure [Recovered/Resolved]
  - Psychotic disorder [Recovered/Resolved]
  - Malaise [Recovering/Resolving]
  - Cerebral ventricle dilatation [Unknown]
  - Decreased appetite [Recovering/Resolving]
  - Catatonia [Recovering/Resolving]
  - Hallucination [Recovered/Resolved]
  - Complex partial seizures [Recovered/Resolved]
  - Gastrointestinal disorder [Recovered/Resolved]
  - Balance disorder [Recovering/Resolving]
  - Anxiety [Recovering/Resolving]
  - Fatigue [Recovering/Resolving]
  - Ataxia [Recovering/Resolving]
  - Tremor [Recovering/Resolving]
  - Tonic clonic movements [Recovered/Resolved]
  - Upper respiratory tract infection [Recovered/Resolved]
  - Dyskinesia [Recovering/Resolving]

NARRATIVE: CASE EVENT DATE: 199304
